FAERS Safety Report 6061875-6 (Version None)
Quarter: 2009Q1

REPORT INFORMATION
  Report Type: 
  Country: None (occurrence: None)
  Receive Date: 20090202
  Receipt Date: 20090121
  Transmission Date: 20090719
  Serious: Yes (Other)
  Sender: FDA-Public Use
  Company Number: PHHY2009NO02568

PATIENT

DRUGS (1)
  1. LEPONEX [Suspect]
     Dosage: 325 MG, ONCE/SINGLE

REACTIONS (3)
  - COMA [None]
  - DRUG DISPENSING ERROR [None]
  - INCREASED BRONCHIAL SECRETION [None]
